FAERS Safety Report 21115226 (Version 2)
Quarter: 2022Q3

REPORT INFORMATION
  Report Type: Report from Study
  Country: CA (occurrence: CA)
  Receive Date: 20220721
  Receipt Date: 20220727
  Transmission Date: 20221026
  Serious: Yes (Other)
  Sender: FDA-Public Use
  Company Number: CA-GILEAD-2022-0576466

PATIENT
  Sex: Female

DRUGS (6)
  1. SACITUZUMAB GOVITECAN [Suspect]
     Active Substance: SACITUZUMAB GOVITECAN
     Indication: Triple negative breast cancer
     Dosage: 645 MG, DAY 1
     Route: 042
     Dates: start: 20220328
  2. SACITUZUMAB GOVITECAN [Suspect]
     Active Substance: SACITUZUMAB GOVITECAN
     Dosage: DAY 8
     Route: 042
     Dates: start: 20220404
  3. SACITUZUMAB GOVITECAN [Suspect]
     Active Substance: SACITUZUMAB GOVITECAN
     Dosage: CYCLE 2 DAY 1
     Route: 042
     Dates: start: 20220420
  4. SACITUZUMAB GOVITECAN [Suspect]
     Active Substance: SACITUZUMAB GOVITECAN
     Dosage: UNK DOSE
     Route: 042
     Dates: start: 20220624, end: 20220624
  5. CISPLATIN;GEMCITABINE [Concomitant]
  6. ERIBULIN [Concomitant]
     Active Substance: ERIBULIN

REACTIONS (5)
  - Disease progression [Unknown]
  - Neutrophil count decreased [Unknown]
  - Neutrophil count decreased [Unknown]
  - Inappropriate schedule of product administration [Unknown]
  - Inappropriate schedule of product administration [Unknown]
